FAERS Safety Report 9122014 (Version 1)
Quarter: 2012Q4

REPORT INFORMATION
  Report Type: Spontaneous
  Country: US (occurrence: None)
  Receive Date: 20121026
  Receipt Date: 20121026
  Transmission Date: 20130627
  Serious: No
  Sender: FDA-Public Use
  Company Number: 2012US-004392

PATIENT
  Age: 62 Year
  Sex: Female
  Weight: 109.5 kg

DRUGS (1)
  1. OMONTYS (PEGINESATIDE) SOLUTION FOR INJECTION [Suspect]
     Route: 042
     Dates: start: 20120917, end: 20120917

REACTIONS (4)
  - Flushing [None]
  - Erythema [None]
  - Nausea [None]
  - Vomiting [None]
